FAERS Safety Report 7622808-1 (Version None)
Quarter: 2011Q3

REPORT INFORMATION
  Report Type: 
  Country: None (occurrence: None)
  Receive Date: 20110720
  Receipt Date: 20110505
  Transmission Date: 20111222
  Serious: No
  Sender: FDA-Public Use
  Company Number: US-MYLANLABS-2011S1009586

PATIENT
  Sex: Female

DRUGS (7)
  1. PRAVACHOL [Concomitant]
     Route: 048
  2. TRIAMTERENE AND HYDROCHLOROTHIAZIDE [Suspect]
     Indication: BLOOD PRESSURE INCREASED
     Route: 048
     Dates: start: 20110401, end: 20110501
  3. TRIAMTERENE AND HYDROCHLOROTHIAZIDE [Suspect]
     Route: 048
     Dates: start: 20110401, end: 20110501
  4. EVISTA [Concomitant]
     Route: 048
  5. TRIAMTERENE AND HYDROCHLOROTHIAZIDE [Suspect]
     Indication: OEDEMA
     Route: 048
     Dates: start: 20110401, end: 20110501
  6. TRIAMTERENE AND HYDROCHLOROTHIAZIDE [Suspect]
     Route: 048
     Dates: start: 20110401, end: 20110501
  7. OMEPRAZOLE [Concomitant]
     Route: 048

REACTIONS (1)
  - MUSCLE SPASMS [None]
